FAERS Safety Report 18414039 (Version 2)
Quarter: 2020Q4

REPORT INFORMATION
  Report Type: Spontaneous
  Country: IT (occurrence: IT)
  Receive Date: 20201022
  Receipt Date: 20201112
  Transmission Date: 20210114
  Serious: Yes (Other)
  Sender: FDA-Public Use
  Company Number: IT-LUPIN PHARMACEUTICALS INC.-2020-06978

PATIENT
  Age: 3 Month
  Sex: Female

DRUGS (7)
  1. CARBAMAZEPINE. [Concomitant]
     Active Substance: CARBAMAZEPINE
     Dosage: 15 MILLIGRAM/KILOGRAM, QD,INCREASED BY 5 MG/KG/DAY EVERY 5 DAYS
     Route: 065
  2. VALPROATE [Concomitant]
     Active Substance: VALPROIC ACID
     Indication: EPILEPSY
     Dosage: 480 MILLIGRAM, QD
     Route: 065
  3. CARBAMAZEPINE. [Concomitant]
     Active Substance: CARBAMAZEPINE
     Indication: MOVEMENT DISORDER
     Dosage: 5 MILLIGRAM/KILOGRAM, QD,TITRATION SCHEME OF CARBAMAZEPINE
     Route: 065
  4. CARBAMAZEPINE. [Concomitant]
     Active Substance: CARBAMAZEPINE
     Dosage: 20 MILLIGRAM/KILOGRAM, QD,INCREASED BY 5 MG/KG/DAY EVERY 5 DAYS UP TO A PLANNED MAINTENANCE DOSE OF
     Route: 065
  5. TOPIRAMAT [Suspect]
     Active Substance: TOPIRAMATE
     Indication: EPILEPSY
     Dosage: UNK (LIMITED TIME PERIOD THERAPY)
     Route: 065
  6. LEVETIRACETAM. [Suspect]
     Active Substance: LEVETIRACETAM
     Indication: EPILEPSY
     Dosage: UNK (LIMITED TIME PERIOD THERAPY)
     Route: 065
  7. CARBAMAZEPINE. [Concomitant]
     Active Substance: CARBAMAZEPINE
     Dosage: 10 MILLIGRAM/KILOGRAM, QD,INCREASED BY 5 MG/KG/DAY EVERY 5 DAYS
     Route: 065

REACTIONS (2)
  - Drug ineffective [Unknown]
  - Decreased appetite [Unknown]
